FAERS Safety Report 8848263 (Version 2)
Quarter: 2015Q2

REPORT INFORMATION
  Report Type: Report from Study
  Country: US (occurrence: US)
  Receive Date: 20121018
  Receipt Date: 20150401
  Transmission Date: 20150821
  Serious: Yes (Hospitalization)
  Sender: FDA-Public Use
  Company Number: US-ROCHE-1139656

PATIENT
  Sex: Female

DRUGS (3)
  1. PROTROPIN [Suspect]
     Active Substance: SOMATREM
     Indication: HYPOPITUITARISM
     Dosage: ALSO RECEIVED 0.35 MG DAILY
     Route: 058
     Dates: start: 19930402
  2. HYDROCORTISONE. [Concomitant]
     Active Substance: HYDROCORTISONE
     Route: 065
     Dates: start: 19930706
  3. SYNTHROID [Concomitant]
     Active Substance: LEVOTHYROXINE SODIUM
     Route: 065
     Dates: start: 19930401

REACTIONS (2)
  - Coma [Unknown]
  - Decreased activity [Unknown]
